FAERS Safety Report 5036403-4 (Version None)
Quarter: 2006Q2

REPORT INFORMATION
  Report Type: 
  Country: None (occurrence: None)
  Receive Date: 20060601
  Receipt Date: 20060407
  Transmission Date: 20061013
  Serious: No
  Sender: FDA-Public Use
  Company Number: US200604002152

PATIENT

DRUGS (1)
  1. CYMBALTA [Suspect]
     Dosage: 60 MG
     Dates: start: 20050901, end: 20050101

REACTIONS (3)
  - HALLUCINATION [None]
  - MENTAL STATUS CHANGES [None]
  - SOMNOLENCE [None]
